FAERS Safety Report 6993213-6 (Version None)
Quarter: 2010Q3

REPORT INFORMATION
  Report Type: 
  Country: None (occurrence: None)
  Receive Date: 20100917
  Receipt Date: 20100205
  Transmission Date: 20110219
  Serious: Yes (Hospitalization)
  Sender: FDA-Public Use
  Company Number: US-ASTRAZENECA-2009SE18296

PATIENT
  Age: 14342 Day
  Sex: Male
  Weight: 90.7 kg

DRUGS (7)
  1. SEROQUEL [Suspect]
     Indication: SLEEP DISORDER
     Route: 048
     Dates: start: 20011115
  2. SEROQUEL [Suspect]
     Route: 048
     Dates: start: 20030101, end: 20030801
  3. SEROQUEL [Suspect]
     Route: 048
     Dates: start: 20031218
  4. NEURONTIN [Concomitant]
     Dosage: 100-600 MG
     Dates: start: 20010614
  5. FLUOXETINE [Concomitant]
     Dates: start: 20010806
  6. WELLBUTRIN SR [Concomitant]
     Dates: start: 20010705
  7. LEXAPRO [Concomitant]
     Dates: start: 20031218

REACTIONS (2)
  - BIPOLAR DISORDER [None]
  - DIABETES MELLITUS [None]
